FAERS Safety Report 14518964 (Version 1)
Quarter: 2018Q1

REPORT INFORMATION
  Report Type: Spontaneous
  Country: US (occurrence: US)
  Receive Date: 20180209
  Receipt Date: 20180209
  Transmission Date: 20180509
  Serious: Yes (Disabling)
  Sender: FDA-Public Use
  Company Number: None

PATIENT
  Age: 23 Month
  Sex: Female
  Weight: 13.5 kg

DRUGS (4)
  1. CEPHALEXIN. [Concomitant]
     Active Substance: CEPHALEXIN
  2. FENTANYL. [Concomitant]
     Active Substance: FENTANYL
  3. ATROPINE. [Concomitant]
     Active Substance: ATROPINE
  4. KETAMINE 15 MG [Suspect]
     Active Substance: KETAMINE
     Indication: SEDATION
     Dates: start: 20120904, end: 20120904

REACTIONS (3)
  - Memory impairment [None]
  - Speech disorder [None]
  - Educational problem [None]

NARRATIVE: CASE EVENT DATE: 20120904
